FAERS Safety Report 17701967 (Version 1)
Quarter: 2020Q2

REPORT INFORMATION
  Report Type: Spontaneous
  Country: US (occurrence: US)
  Receive Date: 20200423
  Receipt Date: 20200423
  Transmission Date: 20200714
  Serious: No
  Sender: FDA-Public Use
  Company Number: US-ABBVIE-20K-163-3251334-00

PATIENT
  Sex: Female

DRUGS (1)
  1. ORILISSA [Suspect]
     Active Substance: ELAGOLIX SODIUM
     Indication: PRODUCT USED FOR UNKNOWN INDICATION
     Route: 048

REACTIONS (12)
  - Pelvic pain [Unknown]
  - Breast pain [Unknown]
  - Night sweats [Unknown]
  - Pain [Unknown]
  - Pain in extremity [Unknown]
  - Hot flush [Unknown]
  - Insomnia [Unknown]
  - Anxiety [Unknown]
  - Temperature intolerance [Unknown]
  - Fatigue [Unknown]
  - Feeling abnormal [Unknown]
  - Psychiatric symptom [Unknown]
